FAERS Safety Report 7860310-2 (Version None)
Quarter: 2011Q4

REPORT INFORMATION
  Report Type: 
  Country: None (occurrence: None)
  Receive Date: 20111027
  Receipt Date: 20111012
  Transmission Date: 20120403
  Serious: Yes (Hospitalization)
  Sender: FDA-Public Use
  Company Number: US-JUTA GMBH-2011-16762

PATIENT
  Age: 34 Year
  Sex: Female

DRUGS (3)
  1. LAMOTRIGINE [Suspect]
     Indication: INTENTIONAL OVERDOSE
     Route: 048
  2. FLUOXETINE HCL [Suspect]
     Indication: INTENTIONAL OVERDOSE
     Route: 048
  3. ETHANOL [Suspect]
     Indication: INTENTIONAL OVERDOSE
     Route: 048

REACTIONS (6)
  - TREMOR [None]
  - TONIC CONVULSION [None]
  - TACHYCARDIA [None]
  - DEPRESSED LEVEL OF CONSCIOUSNESS [None]
  - INTENTIONAL OVERDOSE [None]
  - NEUROTOXICITY [None]
